FAERS Safety Report 17153856 (Version 1)
Quarter: 2019Q4

REPORT INFORMATION
  Report Type: Report from Study
  Country: US (occurrence: US)
  Receive Date: 20191213
  Receipt Date: 20191213
  Transmission Date: 20200122
  Serious: Yes (Hospitalization)
  Sender: FDA-Public Use
  Company Number: NVSC2019US068871

PATIENT
  Sex: Male

DRUGS (1)
  1. ENTRESTO [Suspect]
     Active Substance: SACUBITRIL\VALSARTAN
     Indication: CARDIAC FAILURE
     Dosage: 1 DF, (24 MG OF SACUBITRIL/ 26 MG OF VALSARTAN), BID
     Route: 048
     Dates: start: 201911

REACTIONS (1)
  - Transient ischaemic attack [Recovering/Resolving]
